FAERS Safety Report 15663731 (Version 1)
Quarter: 2018Q4

REPORT INFORMATION
  Report Type: Spontaneous
  Country: US (occurrence: US)
  Receive Date: 20181128
  Receipt Date: 20181128
  Transmission Date: 20190205
  Serious: Yes (Hospitalization, Other)
  Sender: FDA-Public Use
  Company Number: US-TEVA-2018-US-980576

PATIENT
  Age: 86 Year
  Sex: Female

DRUGS (1)
  1. METHOTREXATE. [Suspect]
     Active Substance: METHOTREXATE
     Indication: RHEUMATOID ARTHRITIS
     Dosage: LOW DOSE; WEEKLY
     Route: 065

REACTIONS (3)
  - Histoplasmosis [Recovered/Resolved]
  - Fall [Recovered/Resolved]
  - Arthritis bacterial [Recovered/Resolved]
